FAERS Safety Report 4791122-4 (Version None)
Quarter: 2005Q4

REPORT INFORMATION
  Report Type: 
  Country: None (occurrence: None)
  Receive Date: 20051005
  Receipt Date: 20050321
  Transmission Date: 20060501
  Serious: Yes (Hospitalization)
  Sender: FDA-Public Use
  Company Number: 10562

PATIENT
  Age: 68 Year
  Sex: Female

DRUGS (3)
  1. FLUOROURACIL [Suspect]
     Indication: BILIARY NEOPLASM
     Dosage: 375 MG/M2 IV
     Route: 042
     Dates: start: 20050111
  2. LEUCOVORIN [Suspect]
     Indication: BILIARY NEOPLASM
     Dosage: 25 MG/M2 IV
     Route: 042
     Dates: start: 20050111
  3. METOPROLOL SUCCINATE [Concomitant]

REACTIONS (1)
  - FEBRILE NEUTROPENIA [None]
